FAERS Safety Report 15289407 (Version 2)
Quarter: 2018Q4

REPORT INFORMATION
  Report Type: Report from Study
  Country: JP (occurrence: JP)
  Receive Date: 20180817
  Receipt Date: 20180820
  Transmission Date: 20190204
  Serious: Yes (Hospitalization)
  Sender: FDA-Public Use
  Company Number: JP-TEVA-512684ISR

PATIENT
  Age: 80 Year
  Sex: Male
  Weight: 49.6 kg

DRUGS (12)
  1. EPLERENONE;PLACEBO FILM-COATED TABLET [Suspect]
     Active Substance: EPLERENONE\PLACEBO
     Dosage: BLINDED, INFORMATION WITHHELD
     Dates: start: 20140311, end: 20140318
  2. POTASSIUM CHLORIDE. [Concomitant]
     Active Substance: POTASSIUM CHLORIDE
     Dosage: ONGOING
     Dates: start: 20110512
  3. AMBROXOL HYDROCHLORIDE [Concomitant]
     Active Substance: AMBROXOL HYDROCHLORIDE
     Dosage: ONGOING
     Dates: start: 20110512
  4. ALLOPURINOL. [Concomitant]
     Active Substance: ALLOPURINOL
     Dosage: ONGOING
     Dates: start: 20110512
  5. FAMOTIDINE. [Concomitant]
     Active Substance: FAMOTIDINE
     Dosage: ONGOING
     Dates: start: 20041108
  6. BROMHEXINE HYDROCHLORIDE [Concomitant]
     Active Substance: BROMHEXINE HYDROCHLORIDE
     Dosage: ONGOING
     Dates: start: 20110512
  7. EPLERENONE;PLACEBO FILM-COATED TABLET [Suspect]
     Active Substance: EPLERENONE\PLACEBO
     Indication: CARDIAC FAILURE
     Dates: start: 20140319, end: 20140403
  8. BISOPROLOL FUMARATE. [Concomitant]
     Active Substance: BISOPROLOL FUMARATE
     Dosage: ONGOING
     Dates: start: 20110512
  9. ENALAPRIL MALEATE. [Concomitant]
     Active Substance: ENALAPRIL MALEATE
     Dosage: ONGOING
  10. AMIODARONE HYDROCHLORIDE. [Concomitant]
     Active Substance: AMIODARONE HYDROCHLORIDE
     Dosage: ONGOING
     Dates: start: 20061027
  11. WARFARIN [Suspect]
     Active Substance: WARFARIN
     Indication: THROMBOSIS PROPHYLAXIS
     Route: 048
     Dates: start: 20031002
  12. TORASEMIDE [Concomitant]
     Active Substance: TORSEMIDE
     Dosage: ONGOING
     Dates: start: 20031002

REACTIONS (1)
  - Small intestinal haemorrhage [Recovered/Resolved]

NARRATIVE: CASE EVENT DATE: 20140401
